FAERS Safety Report 6516097-9 (Version None)
Quarter: 2009Q4

REPORT INFORMATION
  Report Type: 
  Country: None (occurrence: None)
  Receive Date: 20091217
  Receipt Date: 20090922
  Transmission Date: 20100525
  Serious: Yes (Hospitalization)
  Sender: FDA-Public Use
  Company Number: US-000928

PATIENT
  Sex: Female

DRUGS (13)
  1. MENOPUR [Suspect]
     Indication: DRUG USE FOR UNKNOWN INDICATION
     Dosage: (150 IU QD) ; (75 IU QD)
     Dates: start: 20090812, end: 20090821
  2. MENOPUR [Suspect]
     Indication: DRUG USE FOR UNKNOWN INDICATION
     Dosage: (150 IU QD) ; (75 IU QD)
     Dates: start: 20090822, end: 20090822
  3. BRAVELLE [Suspect]
     Indication: DRUG USE FOR UNKNOWN INDICATION
     Dosage: 75 IU QD) ; (150 IU QD) ; (75 IU QD)
     Dates: start: 20090812, end: 20090814
  4. BRAVELLE [Suspect]
     Indication: DRUG USE FOR UNKNOWN INDICATION
     Dosage: 75 IU QD) ; (150 IU QD) ; (75 IU QD)
     Dates: start: 20090815, end: 20090818
  5. BRAVELLE [Suspect]
     Indication: DRUG USE FOR UNKNOWN INDICATION
     Dosage: 75 IU QD) ; (150 IU QD) ; (75 IU QD)
     Dates: start: 20090819, end: 20090819
  6. CHLOR-TRIMETON /00072502/ [Concomitant]
  7. DOSTINEX [Concomitant]
  8. GANIRELIX ACETATE INJECTION [Concomitant]
  9. HEPARIN [Concomitant]
  10. ZOFRAN [Concomitant]
  11. COMPAZINE SPANSULE [Concomitant]
  12. LUPRON [Concomitant]
  13. CHORIONIC GONADOTROPIN [Concomitant]

REACTIONS (1)
  - OVARIAN HYPERSTIMULATION SYNDROME [None]
